FAERS Safety Report 10087512 (Version 1)
Quarter: 2014Q2

REPORT INFORMATION
  Report Type: Spontaneous
  Country: US (occurrence: US)
  Receive Date: 20140418
  Receipt Date: 20140418
  Transmission Date: 20141212
  Serious: No
  Sender: FDA-Public Use
  Company Number: US-PURDUE-USA-2013-0108331

PATIENT
  Sex: Female

DRUGS (3)
  1. OXYCONTIN (NDA 22-272) [Suspect]
     Indication: MUSCULOSKELETAL PAIN
     Dosage: 30 MG, Q12H
     Route: 048
     Dates: end: 201310
  2. OXYCONTIN (NDA 22-272) [Suspect]
     Dosage: 40 MG, Q12H
     Route: 048
     Dates: start: 20131031
  3. OXYCODONE HYDROCHLORIDE (SIMILAR TO NDA 22-272) [Concomitant]
     Indication: BREAKTHROUGH PAIN
     Dosage: 1 TABLET ,10MG OR 15 MG  AS NEEDED
     Route: 048
     Dates: start: 201308

REACTIONS (3)
  - Pain [Unknown]
  - Drug ineffective [Recovered/Resolved]
  - Constipation [Recovered/Resolved]
